FAERS Safety Report 18657391 (Version 4)
Quarter: 2021Q1

REPORT INFORMATION
  Report Type: Spontaneous
  Country: US (occurrence: US)
  Receive Date: 20201224
  Receipt Date: 20210208
  Transmission Date: 20210419
  Serious: No
  Sender: FDA-Public Use
  Company Number: US-GLAXOSMITHKLINE-US2020AMR251355

PATIENT
  Sex: Female

DRUGS (4)
  1. ZEJULA [Suspect]
     Active Substance: NIRAPARIB
     Indication: OVARIAN CANCER
     Dosage: 300 MG, QD (100 MG 3 CAPSULES)
     Dates: start: 20201130
  2. ZEJULA [Suspect]
     Active Substance: NIRAPARIB
     Dosage: 300 MG
     Dates: start: 20201201
  3. ZEJULA [Suspect]
     Active Substance: NIRAPARIB
     Dosage: 300 MG, QD
  4. ZEJULA [Suspect]
     Active Substance: NIRAPARIB
     Dosage: 100 MG, TID

REACTIONS (8)
  - SARS-CoV-2 test positive [Recovered/Resolved]
  - Adverse drug reaction [Unknown]
  - Rash [Recovering/Resolving]
  - Pruritus [Recovering/Resolving]
  - Decreased appetite [Unknown]
  - Product dose omission in error [Unknown]
  - Insomnia [Unknown]
  - Paraesthesia [Unknown]
